FAERS Safety Report 17495631 (Version 1)
Quarter: 2020Q1

REPORT INFORMATION
  Report Type: Spontaneous
  Country: US (occurrence: US)
  Receive Date: 20200224
  Receipt Date: 20200224
  Transmission Date: 20200409
  Serious: No
  Sender: FDA-Public Use
  Company Number: None

PATIENT
  Sex: Male

DRUGS (4)
  1. VIGABATRIN POWDER [Suspect]
     Active Substance: VIGABATRIN
     Indication: NEONATAL SEIZURE
     Route: 048
     Dates: start: 20180129
  2. VIGABATRIN POWDER [Suspect]
     Active Substance: VIGABATRIN
     Indication: CONGENITAL CENTRAL NERVOUS SYSTEM ANOMALY
     Route: 048
     Dates: start: 20180129
  3. VIGABATRIN POWDER [Suspect]
     Active Substance: VIGABATRIN
     Indication: EPILEPSY
     Route: 048
     Dates: start: 20180129
  4. VIGABATRIN POWDER [Suspect]
     Active Substance: VIGABATRIN
     Indication: LENNOX-GASTAUT SYNDROME
     Route: 048
     Dates: start: 20180129

REACTIONS (1)
  - Seizure [None]
